FAERS Safety Report 8571717-2 (Version None)
Quarter: 2012Q3

REPORT INFORMATION
  Report Type: 
  Country: None (occurrence: None)
  Receive Date: 20120806
  Receipt Date: 20120802
  Transmission Date: 20120928
  Serious: Yes (Life-Threatening)
  Sender: FDA-Public Use
  Company Number: PHEH2012US012458

PATIENT
  Sex: Male

DRUGS (2)
  1. GLEEVEC [Suspect]
     Dosage: 600 MG, 100 MG 6 TABLETS DAILY
     Route: 048
     Dates: start: 20120216, end: 20120619
  2. GLEEVEC [Suspect]
     Indication: CHRONIC MYELOID LEUKAEMIA
     Dosage: 2400 MG, QD (THREE DAYS)
     Route: 048
     Dates: start: 20120601

REACTIONS (14)
  - BLOOD IRON DECREASED [None]
  - DRUG PRESCRIBING ERROR [None]
  - HAEMOGLOBIN DECREASED [None]
  - BLOOD CHLORIDE DECREASED [None]
  - GLOMERULAR FILTRATION RATE DECREASED [None]
  - INCORRECT DOSE ADMINISTERED [None]
  - LETHARGY [None]
  - OEDEMA [None]
  - ASPARTATE AMINOTRANSFERASE INCREASED [None]
  - RENAL IMPAIRMENT [None]
  - ALANINE AMINOTRANSFERASE INCREASED [None]
  - TRANSFERRIN SATURATION DECREASED [None]
  - BLOOD SODIUM DECREASED [None]
  - BLOOD CREATININE INCREASED [None]
